FAERS Safety Report 16963904 (Version 1)
Quarter: 2019Q4

REPORT INFORMATION
  Report Type: Spontaneous
  Country: BR (occurrence: BR)
  Receive Date: 20191026
  Receipt Date: 20191026
  Transmission Date: 20200122
  Serious: Yes (Life-Threatening, Other)
  Sender: FDA-Public Use
  Company Number: NVSC2019BR014688

PATIENT
  Age: 58 Year
  Sex: Female

DRUGS (1)
  1. ROSUVASTATIN CALCIUM. [Suspect]
     Active Substance: ROSUVASTATIN CALCIUM
     Indication: PRODUCT USED FOR UNKNOWN INDICATION
     Route: 065

REACTIONS (8)
  - Oropharyngeal discomfort [Recovered/Resolved]
  - Pruritus [Unknown]
  - Erythema [Unknown]
  - Dysuria [Unknown]
  - Asphyxia [Recovered/Resolved]
  - Hypersensitivity [Recovered/Resolved]
  - Chest pain [Unknown]
  - Dry throat [Recovered/Resolved]

NARRATIVE: CASE EVENT DATE: 20191020
